FAERS Safety Report 13009687 (Version 2)
Quarter: 2017Q1

REPORT INFORMATION
  Report Type: Spontaneous
  Country: JP (occurrence: JP)
  Receive Date: 20161208
  Receipt Date: 20170330
  Transmission Date: 20170428
  Serious: Yes (Life-Threatening, Disabling)
  Sender: FDA-Public Use
  Company Number: JP-ELI_LILLY_AND_COMPANY-JP201609001056

PATIENT
  Age: 71 Year
  Sex: Male
  Weight: 58 kg

DRUGS (6)
  1. HALFDIGOXIN [Concomitant]
     Active Substance: DIGOXIN
     Indication: ARRHYTHMIA
  2. ZALUTIA [Suspect]
     Active Substance: TADALAFIL
     Indication: DYSURIA
     Dosage: 5 MG, QD
     Route: 048
     Dates: start: 20150708, end: 20160908
  3. ACTOS [Concomitant]
     Active Substance: PIOGLITAZONE HYDROCHLORIDE
     Dosage: UNK
  4. TAKELDA [Concomitant]
     Active Substance: ASPIRIN\LANSOPRAZOLE
  5. TRULICITY [Suspect]
     Active Substance: DULAGLUTIDE
     Indication: DIABETES MELLITUS
     Dosage: 0.75 MG, WEEKLY (1/W)
     Route: 058
     Dates: start: 201601, end: 201608
  6. LANTUS [Concomitant]
     Active Substance: INSULIN GLARGINE

REACTIONS (13)
  - Weight decreased [Unknown]
  - Malaise [Unknown]
  - Nasal dryness [Recovered/Resolved]
  - Visual acuity reduced [Unknown]
  - Dysgeusia [Recovered/Resolved]
  - Tongue dry [Not Recovered/Not Resolved]
  - Orthostatic hypotension [Recovered/Resolved]
  - Decreased appetite [Recovered/Resolved]
  - Dyspnoea [Unknown]
  - Erythema [Recovered/Resolved]
  - Muscular weakness [Not Recovered/Not Resolved]
  - Parosmia [Recovered/Resolved]
  - Diabetes mellitus [Recovering/Resolving]

NARRATIVE: CASE EVENT DATE: 2016
